FAERS Safety Report 15651564 (Version 2)
Quarter: 2018Q4

REPORT INFORMATION
  Report Type: Report from Study
  Country: US (occurrence: US)
  Receive Date: 20181123
  Receipt Date: 20181128
  Transmission Date: 20190205
  Serious: Yes (Other)
  Sender: FDA-Public Use
  Company Number: US-B.I. PHARMACEUTICALS,INC./RIDGEFIELD-2018-BI-045117

PATIENT
  Sex: Female

DRUGS (3)
  1. OFEV [Suspect]
     Active Substance: NINTEDANIB
     Route: 048
  2. OFEV [Suspect]
     Active Substance: NINTEDANIB
     Indication: IDIOPATHIC PULMONARY FIBROSIS
     Route: 048
  3. OFEV [Suspect]
     Active Substance: NINTEDANIB
     Indication: DYSPNOEA
     Route: 048
     Dates: start: 20180831

REACTIONS (10)
  - Diarrhoea [Recovered/Resolved]
  - Fatigue [Not Recovered/Not Resolved]
  - Vomiting [Unknown]
  - Asthenia [Unknown]
  - Gingival bleeding [Unknown]
  - Hepatic enzyme increased [Recovered/Resolved]
  - Gastric disorder [Not Recovered/Not Resolved]
  - Dysphonia [Unknown]
  - Nausea [Recovered/Resolved]
  - Constipation [Recovered/Resolved]
